FAERS Safety Report 15191167 (Version 1)
Quarter: 2018Q3

REPORT INFORMATION
  Report Type: Spontaneous
  Country: US (occurrence: US)
  Receive Date: 20180625
  Receipt Date: 20180625
  Transmission Date: 20181010
  Serious: Yes (Life-Threatening, Disabling)
  Sender: FDA-Public Use
  Company Number: None

PATIENT
  Age: 52 Year
  Sex: Male
  Weight: 89.55 kg

DRUGS (2)
  1. CLONAZAPAM [Suspect]
     Active Substance: CLONAZEPAM
     Indication: ESSENTIAL TREMOR
     Dosage: ?          QUANTITY:60 TABLET(S);?
     Route: 048
     Dates: start: 20151115, end: 20180612
  2. CLONAZAPAM [Suspect]
     Active Substance: CLONAZEPAM
     Indication: NEUROPATHY PERIPHERAL
     Dosage: ?          QUANTITY:60 TABLET(S);?
     Route: 048
     Dates: start: 20151115, end: 20180612

REACTIONS (9)
  - Arthralgia [None]
  - Dyspnoea [None]
  - Muscle twitching [None]
  - Panic attack [None]
  - Tremor [None]
  - Muscle atrophy [None]
  - Walking aid user [None]
  - Muscle spasms [None]
  - Insomnia [None]

NARRATIVE: CASE EVENT DATE: 20161110
